FAERS Safety Report 4575506-5 (Version None)
Quarter: 2005Q1

REPORT INFORMATION
  Report Type: 
  Country: None (occurrence: None)
  Receive Date: 20050128
  Receipt Date: 20050128
  Transmission Date: 20050727
  Serious: Yes (Death, Hospitalization)
  Sender: FDA-Public Use
  Company Number: None

PATIENT
  Sex: Female
  Weight: 46.2669 kg

DRUGS (2)
  1. PACLITAXEL [Suspect]
     Indication: CHEMOTHERAPY
     Dosage: 20 MG/M2   DAILY X 5   INTRAVENOU
     Route: 042
     Dates: start: 20040628, end: 20040712
  2. CISPLATIN [Suspect]
     Indication: CHEMOTHERAPY
     Dosage: 15 MG/M2    DAILY X5    INTRAVENOU
     Route: 042
     Dates: start: 20040628, end: 20040712

REACTIONS (9)
  - APHAGIA [None]
  - DYSPHAGIA [None]
  - FEBRILE NEUTROPENIA [None]
  - GENERAL PHYSICAL HEALTH DETERIORATION [None]
  - MUCOSAL INFLAMMATION [None]
  - OXYGEN SATURATION DECREASED [None]
  - PNEUMONIA ASPIRATION [None]
  - PRODUCTIVE COUGH [None]
  - PULMONARY OEDEMA [None]
